FAERS Safety Report 10416726 (Version 4)
Quarter: 2014Q4

REPORT INFORMATION
  Report Type: Spontaneous
  Country: US (occurrence: None)
  Receive Date: 20140826
  Receipt Date: 20141223
  Transmission Date: 20150528
  Serious: Yes (Other)
  Sender: FDA-Public Use
  Company Number: US-000882

PATIENT
  Age: 72 Year
  Sex: Female
  Weight: 59.42 kg

DRUGS (12)
  1. VITAMIN D [Concomitant]
     Active Substance: CHOLECALCIFEROL
  2. CENTRUM [Concomitant]
     Active Substance: VITAMINS
  3. CITRACAL [Concomitant]
     Active Substance: CALCIUM CITRATE
  4. LOMOTIL [Concomitant]
     Active Substance: ATROPINE SULFATE\DIPHENOXYLATE HYDROCHLORIDE
  5. BENEFIBER [Concomitant]
     Active Substance: STARCH, WHEAT
  6. GATTEX [Suspect]
     Active Substance: TEDUGLUTIDE\WATER
     Indication: SHORT-BOWEL SYNDROME
     Route: 058
     Dates: start: 20130925
  7. PAXIL [Concomitant]
     Active Substance: PAROXETINE HYDROCHLORIDE
  8. ATIVAN [Concomitant]
     Active Substance: LORAZEPAM
  9. FLUOXETINE [Concomitant]
     Active Substance: FLUOXETINE\FLUOXETINE HYDROCHLORIDE
  10. SOLUTIONS FOR PARENTERAL NUTRITION [Concomitant]
     Active Substance: AMINO ACIDS\DEXTROSE\ELECTROLYTES NOS
  11. I.V. SOLUTIONS [Concomitant]
  12. IMODIUM [Concomitant]
     Active Substance: LOPERAMIDE HYDROCHLORIDE

REACTIONS (12)
  - Abdominal distension [None]
  - Abdominal pain upper [None]
  - Joint swelling [None]
  - Injection site pain [None]
  - Fistula [None]
  - Arthralgia [None]
  - Nodule [None]
  - Depression [None]
  - Groin pain [None]
  - Gastrointestinal stoma complication [None]
  - Peripheral swelling [None]
  - Flatulence [None]

NARRATIVE: CASE EVENT DATE: 201311
